FAERS Safety Report 13950439 (Version 1)
Quarter: 2017Q3

REPORT INFORMATION
  Report Type: Spontaneous
  Country: SE (occurrence: SE)
  Receive Date: 20170908
  Receipt Date: 20170908
  Transmission Date: 20171128
  Serious: Yes (Life-Threatening, Hospitalization)
  Sender: FDA-Public Use
  Company Number: SE-TEVA-801987ACC

PATIENT
  Age: 77 Year
  Sex: Male

DRUGS (27)
  1. FURIX 40 MG TABLETT [Concomitant]
  2. DOLCONTIN 5 MG DEPOTTABLETT [Concomitant]
     Dates: start: 20170605, end: 20170727
  3. LAXIRIVA  PULVER TILL ORAL L?SNING I DOSP?SE [Concomitant]
  4. FURIX 10 MG/ML INJEKTIONSV?TSKA, L?SNING [Concomitant]
  5. HALDOL 5 MG/ML INJEKTIONSV?TSKA, L?SNING [Concomitant]
  6. ZOPIKLON PILUM 5 MG FILMDRAGERAD TABLETT [Concomitant]
  7. PARACETAMOL ORIFARM 500 MG FILMDRAGERAD TABLETT [Concomitant]
  8. FENTANYL TRANSDERMAL SYSTEM [Suspect]
     Active Substance: FENTANYL
     Dosage: 1 PATCH EVERY 3 DAYS
     Route: 062
     Dates: start: 20170721, end: 20170726
  9. EMGESAN 250 MG TABLETT [Concomitant]
  10. ALLOPURINOL NORDIC DRUGS 100 MG TABLETT [Concomitant]
  11. XARELTO 20 MG FILMDRAGERAD TABLETT [Concomitant]
  12. ROBINUL 0,2 MG/ML INJEKTIONSV?TSKA, L?SNING [Concomitant]
  13. LANTUS (SOLOSTAR) 100 ENHETER/ML INJEKTIONSV?TSKA, L?SNING I F?RFYLLD [Concomitant]
  14. MORFIN ALTERNOVA 10 MG TABLETT [Concomitant]
  15. HUMALOG 100 E/ML INJEKTIONSV?TSKA, L?SNING [Concomitant]
  16. IMDUR 30 MG DEPOTTABLETT [Concomitant]
  17. CANDESARTAN KRKA 16 MG TABLETT [Concomitant]
  18. GLUCAGON NOVO NORDISK 1 MG (1 IE) PULVER OCH V?TSKA TILL INJEKTIONSV?T [Concomitant]
  19. METOPROLOL SANDOZ 50 MG DEPOTTABLETT [Concomitant]
  20. ESCITALOPRAM KRKA 5 MG FILMDRAGERAD TABLETT [Concomitant]
  21. GLYTRIN 0,4 MG/DOS SUBLINGUALSPRAY [Concomitant]
  22. MIDAZOLAM ACCORD 5 MG/ML INJEKTIONS-/INFUSIONSV?TSKA, L?SNING [Concomitant]
  23. MORFIN ABCUR 10 MG/ML INJEKTIONSV?TSKA, L?SNING [Concomitant]
  24. TROMBYL 75 MG TABLETT [Concomitant]
     Active Substance: ASPIRIN
  25. OXASCAND 5 MG TABLETT [Concomitant]
     Active Substance: OXAZEPAM
  26. HUMALOG KWIKPEN 100 E/ML INJEKTIONSV?TSKA, L?SNING I F?RFYLLD INJEKTIO [Concomitant]
  27. FINASTERID ACTAVIS 5 MG FILMDRAGERAD TABLETT [Concomitant]

REACTIONS (5)
  - Toxicity to various agents [None]
  - Vomiting [Recovered/Resolved]
  - General physical health deterioration [Recovered/Resolved]
  - Prescribed overdose [Recovered/Resolved]
  - Nausea [Recovered/Resolved]

NARRATIVE: CASE EVENT DATE: 201707
